FAERS Safety Report 7693521-X (Version None)
Quarter: 2011Q3

REPORT INFORMATION
  Report Type: 
  Country: None (occurrence: None)
  Receive Date: 20110815
  Receipt Date: 20110805
  Transmission Date: 20111222
  Serious: Yes (Other)
  Sender: FDA-Public Use
  Company Number: 2011SP021869

PATIENT
  Age: 38 Year
  Sex: Female
  Weight: 50 kg

DRUGS (2)
  1. L-THYROX HEXAL [Concomitant]
  2. NUVARING [Suspect]
     Indication: CONTRACEPTION
     Dates: start: 20100201, end: 20101001

REACTIONS (1)
  - COLITIS ULCERATIVE [None]
